FAERS Safety Report 6875650-3 (Version None)
Quarter: 2010Q3

REPORT INFORMATION
  Report Type: 
  Country: None (occurrence: None)
  Receive Date: 20100727
  Receipt Date: 20100716
  Transmission Date: 20110219
  Serious: Yes (Other)
  Sender: FDA-Public Use
  Company Number: JP-ASTRAZENECA-2010SE23876

PATIENT
  Age: 50 Year
  Sex: Male

DRUGS (1)
  1. DIPRIVAN [Suspect]
     Dosage: DOSE UNKNOWN.
     Route: 042
     Dates: start: 20100501, end: 20100501

REACTIONS (1)
  - PROPOFOL INFUSION SYNDROME [None]
